FAERS Safety Report 5522368-5 (Version None)
Quarter: 2007Q4

REPORT INFORMATION
  Report Type: 
  Country: None (occurrence: None)
  Receive Date: 20071120
  Receipt Date: 20071108
  Transmission Date: 20080405
  Serious: Yes (Hospitalization, Other)
  Sender: FDA-Public Use
  Company Number: US-PFIZER INC-2006118351

PATIENT
  Sex: Male
  Weight: 82.6 kg

DRUGS (35)
  1. XALATAN [Suspect]
     Indication: GLAUCOMA
     Route: 047
     Dates: start: 20011201, end: 20061023
  2. XALATAN [Suspect]
     Dates: start: 20070101, end: 20071030
  3. LIPITOR [Suspect]
     Indication: HYPERCHOLESTEROLAEMIA
     Dates: start: 20060101, end: 20070814
  4. DEXTROAMPHETAMINE SULFATE [Suspect]
  5. ALLEGRA [Suspect]
     Dosage: DAILY DOSE:180MG
  6. ASTELIN [Suspect]
     Indication: RHINITIS
     Dates: start: 19940101, end: 20070628
  7. PROPOFOL [Suspect]
  8. SYNTHROID [Concomitant]
     Indication: ADENOMA BENIGN
     Dates: start: 19970101, end: 20061013
  9. VITAMIN D3 [Concomitant]
     Dosage: DAILY DOSE:1000I.U.
     Route: 048
     Dates: end: 20070905
  10. ACETYLSALICYLIC ACID SRT [Concomitant]
     Dosage: DAILY DOSE:325MG
  11. THYROXIN [Concomitant]
  12. HEPATITIS B VACCINE [Concomitant]
  13. LEVOTHYROXINE SODIUM [Concomitant]
     Dates: end: 20061013
  14. DEXTROAMPHETAMINE [Concomitant]
     Dates: end: 20071004
  15. METHYLPHENIDATE HCL [Concomitant]
     Dates: end: 20071004
  16. ASCORBIC ACID [Concomitant]
  17. VITAMIN B [Concomitant]
  18. VITAMIN CAP [Concomitant]
  19. CALCIUM [Concomitant]
     Dates: end: 20070905
  20. COFFEE [Concomitant]
  21. ATROVENT [Concomitant]
  22. NASALCROM [Concomitant]
  23. MONTELUKAST SODIUM [Concomitant]
  24. SUDAFED 12 HOUR [Concomitant]
  25. OXYMETAZOLINE HYDROCHLORIDE [Concomitant]
  26. LEVOPROPYLHEXEDRINE [Concomitant]
  27. ZOCOR [Concomitant]
  28. ZETIA [Concomitant]
     Dates: end: 20070814
  29. MEVACOR [Concomitant]
  30. ALL OTHER THERAPEUTIC PRODUCTS [Concomitant]
  31. NIASPAN [Concomitant]
  32. OMEGA-3 TRIGLYCERIDES [Concomitant]
     Dosage: DAILY DOSE:3200MG
  33. ACETYLCARNITINE [Concomitant]
  34. FIBERCON [Concomitant]
     Dates: start: 20071011, end: 20071013
  35. FIBERCON [Concomitant]

REACTIONS (19)
  - ARRHYTHMIA [None]
  - ARTERIOSCLEROSIS [None]
  - ATELECTASIS [None]
  - AUTONOMIC NERVOUS SYSTEM IMBALANCE [None]
  - CHRONIC FATIGUE SYNDROME [None]
  - COGNITIVE DISORDER [None]
  - COLONIC POLYP [None]
  - DENTAL CARIES [None]
  - DIVERTICULUM [None]
  - DYSPEPSIA [None]
  - HAEMORRHOIDS [None]
  - HYPERSOMNIA [None]
  - HYPOTHERMIA [None]
  - LEFT ATRIAL DILATATION [None]
  - NASAL TURBINATE HYPERTROPHY [None]
  - OSTEOPENIA [None]
  - PARATHYROID TUMOUR BENIGN [None]
  - RENAL DISORDER [None]
  - THYROID NEOPLASM [None]
